FAERS Safety Report 14669489 (Version 3)
Quarter: 2019Q2

REPORT INFORMATION
  Report Type: Spontaneous
  Country: RU (occurrence: RU)
  Receive Date: 20180322
  Receipt Date: 20190513
  Transmission Date: 20190711
  Serious: Yes (Hospitalization)
  Sender: FDA-Public Use
  Company Number: RU-SA-2018SA081846

PATIENT
  Age: 75 Year
  Sex: Male
  Weight: 81 kg

DRUGS (22)
  1. ACTEMRA [Concomitant]
     Active Substance: TOCILIZUMAB
     Indication: MYALGIA
     Dosage: 162 MG, EVERY 14 DAYS
     Route: 058
     Dates: start: 201704
  2. CHOLECALCIFEROL [Concomitant]
     Active Substance: CHOLECALCIFEROL
     Indication: OSTEOPOROSIS
     Dosage: UNK
     Route: 048
  3. CLEXANE [Suspect]
     Active Substance: ENOXAPARIN SODIUM
     Dosage: 25 MG,QD
     Route: 065
  4. QUETIAPINE FUMARATE. [Suspect]
     Active Substance: QUETIAPINE FUMARATE
     Dosage: 25 MG,QD
     Route: 065
  5. ACTEMRA [Concomitant]
     Active Substance: TOCILIZUMAB
     Indication: TEMPORAL ARTERITIS
     Dosage: 1622 UNK
     Route: 058
  6. ACTEMRA [Concomitant]
     Active Substance: TOCILIZUMAB
     Dosage: 162 MG, BID
     Route: 058
     Dates: start: 20140601, end: 201506
  7. ACTEMRA [Concomitant]
     Active Substance: TOCILIZUMAB
     Dosage: 162 MG, BID
     Route: 058
     Dates: start: 20150706, end: 20171025
  8. ACTEMRA [Concomitant]
     Active Substance: TOCILIZUMAB
     Dosage: 324 MG, BID
     Route: 058
     Dates: start: 20150706, end: 20171025
  9. ACTEMRA [Concomitant]
     Active Substance: TOCILIZUMAB
     Dosage: 162 UNK, UNK
     Route: 058
     Dates: start: 20150707
  10. ACTEMRA [Concomitant]
     Active Substance: TOCILIZUMAB
     Dosage: 162 MG, QW
     Route: 058
     Dates: start: 20190227, end: 20190327
  11. ACTEMRA [Concomitant]
     Active Substance: TOCILIZUMAB
     Dosage: 162 MG, EVERY 12 DAY
     Route: 058
     Dates: start: 201704, end: 20171015
  12. ACTEMRA [Concomitant]
     Active Substance: TOCILIZUMAB
     Dosage: 162 MG, EVERY 14 DAY
     Route: 058
     Dates: start: 20180414
  13. ACTEMRA [Concomitant]
     Active Substance: TOCILIZUMAB
     Dosage: 162 MG, BID
     Route: 058
     Dates: start: 20180131
  14. ACTEMRA [Concomitant]
     Active Substance: TOCILIZUMAB
     Dosage: 162 MG, EVERY 10 DAYS
     Route: 058
     Dates: start: 20150706
  15. ACTEMRA [Concomitant]
     Active Substance: TOCILIZUMAB
     Indication: RHEUMATOID ARTHRITIS
     Dosage: UNK
     Route: 058
     Dates: start: 20140601
  16. ACTEMRA [Concomitant]
     Active Substance: TOCILIZUMAB
     Dosage: 162 MG, QW
     Route: 058
     Dates: start: 20140601, end: 201506
  17. PROLIA [Concomitant]
     Active Substance: DENOSUMAB
     Indication: OSTEOPOROSIS
     Dosage: UNK
     Route: 058
     Dates: start: 201405
  18. FRAXIPARINE [Suspect]
     Active Substance: NADROPARIN CALCIUM
     Dosage: 25 MG,QD
     Route: 065
  19. ACTEMRA [Concomitant]
     Active Substance: TOCILIZUMAB
     Indication: VASCULITIS
     Dosage: 162 MG, EVERY 10 DAYS
     Route: 058
     Dates: start: 20180414
  20. ACTEMRA [Concomitant]
     Active Substance: TOCILIZUMAB
     Dosage: 324 MG, QD
     Route: 058
     Dates: start: 201506
  21. ACTEMRA [Concomitant]
     Active Substance: TOCILIZUMAB
     Dosage: 162 MG, Q3W
     Route: 058
     Dates: start: 201811
  22. ACTEMRA [Concomitant]
     Active Substance: TOCILIZUMAB
     Dosage: 162 UNK, UNK
     Route: 058
     Dates: start: 20190328, end: 20190404

REACTIONS (7)
  - Erysipelas [Recovering/Resolving]
  - Depression [Recovering/Resolving]
  - Sleep disorder [Recovering/Resolving]
  - Wound [Recovering/Resolving]
  - Neoplasm malignant [Recovering/Resolving]
  - Impaired healing [Recovering/Resolving]
  - Leukopenia [Recovering/Resolving]

NARRATIVE: CASE EVENT DATE: 20140715
